FAERS Safety Report 8842881 (Version 2)
Quarter: 2012Q4

REPORT INFORMATION
  Report Type: 
  Country: JP (occurrence: JP)
  Receive Date: 20121016
  Receipt Date: 20121022
  Transmission Date: 20130627
  Serious: Yes (Hospitalization, Other)
  Sender: FDA-Public Use
  Company Number: JP-ASTRAZENECA-2012SE77895

PATIENT
  Age: 79 Year
  Sex: Male

DRUGS (2)
  1. ANAPEINE [Suspect]
     Route: 024
  2. OTHER DRUG [Concomitant]

REACTIONS (2)
  - Respiratory depression [Unknown]
  - Incorrect route of drug administration [Unknown]
